FAERS Safety Report 24795275 (Version 2)
Quarter: 2025Q1

REPORT INFORMATION
  Report Type: Spontaneous
  Country: US (occurrence: US)
  Receive Date: 20241231
  Receipt Date: 20250130
  Transmission Date: 20250408
  Serious: Yes (Other)
  Sender: PFIZER
  Company Number: US-PFIZER INC-202400334576

PATIENT
  Age: 49 Year
  Sex: Female

DRUGS (1)
  1. TUKYSA [Suspect]
     Active Substance: TUCATINIB
     Dosage: TAKE TWO 150 MG TABLETS  EVERY 12 HOURS
     Route: 048

REACTIONS (28)
  - Hypokalaemia [Unknown]
  - Neuropathy peripheral [Unknown]
  - Neutropenia [Unknown]
  - Infected seroma [Unknown]
  - Bone pain [Unknown]
  - Seroma [Unknown]
  - Skin lesion [Unknown]
  - Dehydration [Unknown]
  - Spinal disorder [Unknown]
  - Nausea [Unknown]
  - Vomiting [Unknown]
  - Dysuria [Unknown]
  - Vision blurred [Unknown]
  - Headache [Unknown]
  - Hypertension [Unknown]
  - Insomnia [Unknown]
  - Hepatic lesion [Unknown]
  - Lymphoedema [Unknown]
  - Cerebral disorder [Unknown]
  - Adrenal mass [Unknown]
  - Arthralgia [Unknown]
  - Deficiency anaemia [Unknown]
  - Pain [Unknown]
  - Seasonal allergy [Unknown]
  - Cutaneous symptom [Unknown]
  - Ultrasound scan abnormal [Unknown]
  - Upper respiratory tract infection [Unknown]
  - Asthenia [Unknown]
